FAERS Safety Report 23870625 (Version 18)
Quarter: 2025Q2

REPORT INFORMATION
  Report Type: Spontaneous
  Country: CA (occurrence: CA)
  Receive Date: 20240518
  Receipt Date: 20250416
  Transmission Date: 20250717
  Serious: Yes (Other)
  Sender: CELLTRION
  Company Number: CA-PFIZER INC-202300396720

PATIENT

DRUGS (41)
  1. INFLECTRA [Suspect]
     Active Substance: INFLIXIMAB-DYYB
     Indication: Crohn^s disease
     Route: 042
     Dates: start: 20220823
  2. INFLECTRA [Suspect]
     Active Substance: INFLIXIMAB-DYYB
     Route: 042
     Dates: start: 20230312
  3. INFLECTRA [Suspect]
     Active Substance: INFLIXIMAB-DYYB
     Route: 042
     Dates: start: 20231116
  4. INFLECTRA [Suspect]
     Active Substance: INFLIXIMAB-DYYB
     Route: 042
     Dates: start: 20240119
  5. INFLECTRA [Suspect]
     Active Substance: INFLIXIMAB-DYYB
     Route: 042
     Dates: start: 20240119
  6. INFLECTRA [Suspect]
     Active Substance: INFLIXIMAB-DYYB
     Route: 042
     Dates: start: 20240312
  7. INFLECTRA [Suspect]
     Active Substance: INFLIXIMAB-DYYB
     Route: 042
     Dates: start: 20240509
  8. INFLECTRA [Suspect]
     Active Substance: INFLIXIMAB-DYYB
     Route: 042
     Dates: start: 20240710, end: 20240710
  9. INFLECTRA [Suspect]
     Active Substance: INFLIXIMAB-DYYB
     Route: 042
     Dates: start: 20241010
  10. INFLECTRA [Suspect]
     Active Substance: INFLIXIMAB-DYYB
     Route: 042
     Dates: start: 20241205
  11. INFLECTRA [Suspect]
     Active Substance: INFLIXIMAB-DYYB
     Route: 042
     Dates: start: 20250212
  12. INFLECTRA [Suspect]
     Active Substance: INFLIXIMAB-DYYB
     Route: 042
     Dates: start: 20250407
  13. FOLIC ACID [Concomitant]
     Active Substance: FOLIC ACID
  14. ALPRAZOLAM [Concomitant]
     Active Substance: ALPRAZOLAM
  15. BETADERM [Concomitant]
     Active Substance: BETAMETHASONE VALERATE
  16. BUDESONIDE [Concomitant]
     Active Substance: BUDESONIDE
  17. CYCLOBENZAPRINE [Concomitant]
     Active Substance: CYCLOBENZAPRINE
  18. DEEP RELIEF [Concomitant]
  19. DERMAFLEX [LIDOCAINE] [Concomitant]
  20. DILTIAZEM [Concomitant]
     Active Substance: DILTIAZEM
  21. DOMPERIDONE [Concomitant]
     Active Substance: DOMPERIDONE
  22. DUOLUBE [Concomitant]
  23. FOLIC ACID [Concomitant]
     Active Substance: FOLIC ACID
  24. FOSFOMYCIN [Concomitant]
     Active Substance: FOSFOMYCIN
  25. FUSIDIC ACID [Concomitant]
     Active Substance: FUSIDIC ACID
  26. IRBESARTAN [Concomitant]
     Active Substance: IRBESARTAN
  27. MEDROXYPROGESTERONE ACETATE [Concomitant]
     Active Substance: MEDROXYPROGESTERONE ACETATE
  28. METHOTREXATE [Concomitant]
     Active Substance: METHOTREXATE
     Route: 065
  29. MOMETASONE [Concomitant]
     Active Substance: MOMETASONE
  30. MURO 128 [Concomitant]
     Active Substance: SODIUM CHLORIDE
  31. ODAN BENZYDAMINE [Concomitant]
  32. CHOLESTYRAMINE [Concomitant]
     Active Substance: CHOLESTYRAMINE
  33. PREMARIN [Concomitant]
     Active Substance: ESTROGENS, CONJUGATED
  34. RABEPRAZOLE [Concomitant]
     Active Substance: RABEPRAZOLE
  35. REFRESH PLUS [Concomitant]
     Active Substance: CARBOXYMETHYLCELLULOSE SODIUM
  36. SYMBICORT [Concomitant]
     Active Substance: BUDESONIDE\FORMOTEROL FUMARATE DIHYDRATE
  37. TRAZODONE [Concomitant]
     Active Substance: TRAZODONE HYDROCHLORIDE
  38. TRINTELLIX [Concomitant]
     Active Substance: VORTIOXETINE HYDROBROMIDE
  39. TYLENOL [Concomitant]
     Active Substance: ACETAMINOPHEN
  40. CYANOCOBALAMIN [Concomitant]
     Active Substance: CYANOCOBALAMIN
  41. CHOLECALCIFEROL [Concomitant]
     Active Substance: CHOLECALCIFEROL

REACTIONS (26)
  - Condition aggravated [Recovering/Resolving]
  - Short-bowel syndrome [Not Recovered/Not Resolved]
  - Urine odour abnormal [Unknown]
  - Arthropod bite [Unknown]
  - Fatigue [Not Recovered/Not Resolved]
  - Influenza [Not Recovered/Not Resolved]
  - Sinusitis bacterial [Recovered/Resolved with Sequelae]
  - Insomnia [Not Recovered/Not Resolved]
  - Arthralgia [Recovered/Resolved]
  - Urinary tract infection [Recovered/Resolved]
  - Oropharyngeal pain [Recovered/Resolved]
  - Speech disorder [Recovered/Resolved]
  - COVID-19 [Recovered/Resolved with Sequelae]
  - Constipation [Not Recovered/Not Resolved]
  - Bronchitis [Recovered/Resolved with Sequelae]
  - Aphonia [Recovered/Resolved]
  - Nausea [Unknown]
  - Sleep disorder due to a general medical condition [Unknown]
  - Palpitations [Unknown]
  - Hypertension [Unknown]
  - Productive cough [Unknown]
  - Haemorrhoids [Unknown]
  - Pain [Not Recovered/Not Resolved]
  - Off label use [Unknown]
  - Intentional product use issue [Unknown]
  - Inappropriate schedule of product administration [Unknown]

NARRATIVE: CASE EVENT DATE: 20231101
